FAERS Safety Report 18727519 (Version 1)
Quarter: 2021Q1

REPORT INFORMATION
  Report Type: Spontaneous
  Country: TW (occurrence: TW)
  Receive Date: 20210112
  Receipt Date: 20210112
  Transmission Date: 20210419
  Serious: Yes (Other)
  Sender: FDA-Public Use
  Company Number: TW-AMGEN-TWNSP2021003254

PATIENT
  Age: 6 Year

DRUGS (7)
  1. BLINCYTO [Suspect]
     Active Substance: BLINATUMOMAB
     Dosage: UNK
     Route: 065
     Dates: start: 20200803, end: 20200830
  2. MORCASIN [Concomitant]
     Dosage: 0.5 UNK, QWK
  3. BUSULFAN;FLUDARABINE [Concomitant]
     Dosage: UNK
  4. BLINCYTO [Suspect]
     Active Substance: BLINATUMOMAB
     Dosage: 15 MILLIGRAM/SQ. METER, QD
     Route: 065
     Dates: start: 20200227, end: 20200325
  5. ZOVIRAX [Concomitant]
     Active Substance: ACYCLOVIR
     Dosage: 250 MILLIGRAM
  6. BLINCYTO [Suspect]
     Active Substance: BLINATUMOMAB
     Indication: ACUTE LYMPHOCYTIC LEUKAEMIA
     Dosage: 5 MILLIGRAM/SQ. METER, QD
     Route: 065
     Dates: start: 20200116, end: 20200212
  7. GRANULOCYTE COLONY STIMULATING FACTOR [Concomitant]
     Active Substance: GRANULOCYTE COLONY-STIMULATING FACTOR NOS
     Dosage: UNK

REACTIONS (1)
  - Hyperphosphataemia [Unknown]

NARRATIVE: CASE EVENT DATE: 20200702
